FAERS Safety Report 7475206-8 (Version None)
Quarter: 2011Q2

REPORT INFORMATION
  Report Type: 
  Country: None (occurrence: None)
  Receive Date: 20110512
  Receipt Date: 20110214
  Transmission Date: 20111010
  Serious: No
  Sender: FDA-Public Use
  Company Number: A0913438A

PATIENT
  Age: 69 Year
  Sex: Female

DRUGS (6)
  1. FLOVENT [Concomitant]
  2. DYNACIRC CR [Suspect]
     Indication: HYPERTENSION
     Dosage: 5MG PER DAY
     Route: 048
     Dates: start: 20080201
  3. FLORATIL [Concomitant]
  4. SIMVASTATIN [Concomitant]
  5. ALBUTEROL SULFATE AUTOHALER [Concomitant]
  6. UNKNOWN DRUG [Concomitant]

REACTIONS (2)
  - ALOPECIA [None]
  - NAIL DISORDER [None]
